FAERS Safety Report 23961915 (Version 6)
Quarter: 2024Q3

REPORT INFORMATION
  Report Type: Spontaneous
  Country: DE (occurrence: DE)
  Receive Date: 20240611
  Receipt Date: 20240815
  Transmission Date: 20241017
  Serious: Yes (Hospitalization)
  Sender: BOEHRINGER INGELHEIM
  Company Number: DE-BoehringerIngelheim-2024-BI-032497

PATIENT
  Age: 49 Year
  Sex: Male

DRUGS (12)
  1. JARDIANCE [Suspect]
     Active Substance: EMPAGLIFLOZIN
     Indication: Product used for unknown indication
     Dates: start: 20230127
  2. AMLODIPINE BESYLATE [Concomitant]
     Active Substance: AMLODIPINE BESYLATE
     Indication: Product used for unknown indication
     Dates: start: 20240122
  3. Kreon 20000 IE [Concomitant]
     Indication: Product used for unknown indication
     Dosage: 3-2-3-0
     Dates: start: 20240205
  4. METFORMIN HYDROCHLORIDE\SITAGLIPTIN PHOSPHATE [Concomitant]
     Active Substance: METFORMIN HYDROCHLORIDE\SITAGLIPTIN PHOSPHATE
     Indication: Product used for unknown indication
     Dosage: 50/1000
     Dates: start: 20191018
  5. PANTOPRAZOLE SODIUM [Concomitant]
     Active Substance: PANTOPRAZOLE SODIUM
     Indication: Product used for unknown indication
     Dates: start: 20210325
  6. HYGROTON [Concomitant]
     Active Substance: CHLORTHALIDONE
     Indication: Product used for unknown indication
     Dates: start: 20230710
  7. Mucofalk (Flohsamen) Btl. [Concomitant]
     Indication: Product used for unknown indication
     Dates: start: 20240325
  8. Novalgin Lsg [Concomitant]
     Indication: Product used for unknown indication
     Dosage: UP TO MAX. 4 X 40 DROPS
     Dates: start: 20240215
  9. ACETAMINOPHEN [Concomitant]
     Active Substance: ACETAMINOPHEN
     Indication: Product used for unknown indication
     Dates: start: 20240215
  10. RAMIPRIL [Concomitant]
     Active Substance: RAMIPRIL
     Indication: Product used for unknown indication
     Dates: start: 20230710
  11. TAMSULOSIN [Concomitant]
     Active Substance: TAMSULOSIN
     Indication: Product used for unknown indication
     Dates: start: 20230721
  12. Sitagliptin/Metformin Hexal 50mg/ 1000 mg [Concomitant]
     Indication: Product used for unknown indication
     Dates: end: 20240701

REACTIONS (7)
  - Pancreatitis chronic [Recovering/Resolving]
  - Decreased appetite [Recovering/Resolving]
  - Pain [Recovering/Resolving]
  - Pancreatic duct dilatation [Recovering/Resolving]
  - Pancreatic cyst [Unknown]
  - Renal cyst [Unknown]
  - Hepatic steatosis [Unknown]

NARRATIVE: CASE EVENT DATE: 20230101
